FAERS Safety Report 9101792 (Version 1)
Quarter: 2013Q1

REPORT INFORMATION
  Report Type: Spontaneous
  Country: US (occurrence: None)
  Receive Date: 20130220
  Receipt Date: 20130220
  Transmission Date: 20140127
  Serious: No
  Sender: FDA-Public Use
  Company Number: None

PATIENT
  Age: 60 Year
  Sex: Female

DRUGS (2)
  1. PEGASYS [Suspect]
     Indication: COMA
     Dosage: 180 MCG/0.5 ML  SQ?FROM  02/01/2013  TO  CURRENT
     Route: 058
     Dates: start: 20130201
  2. RIBAPAK [Suspect]
     Indication: COMA
     Dosage: 600 MG  Q MORNING + Q EVENING  ORAL?FROM  02/01/2013  TO  CURRENT
     Route: 048
     Dates: start: 20130201

REACTIONS (2)
  - Pruritus [None]
  - Eye pruritus [None]
